FAERS Safety Report 25990428 (Version 2)
Quarter: 2025Q4

REPORT INFORMATION
  Report Type: Spontaneous
  Country: AU (occurrence: AU)
  Receive Date: 20251103
  Receipt Date: 20251229
  Transmission Date: 20260117
  Serious: Yes (Death)
  Sender: PFIZER
  Company Number: AU-PFIZER INC-PV202500128156

PATIENT
  Age: 71 Year
  Sex: Male

DRUGS (1)
  1. ELREXFIO [Suspect]
     Active Substance: ELRANATAMAB-BCMM
     Route: 058

REACTIONS (1)
  - Death [Fatal]

NARRATIVE: CASE EVENT DATE: 20251001
